FAERS Safety Report 23363526 (Version 1)
Quarter: 2024Q1

REPORT INFORMATION
  Report Type: Spontaneous
  Country: CN (occurrence: CN)
  Receive Date: 20240103
  Receipt Date: 20240103
  Transmission Date: 20240409
  Serious: Yes (Other)
  Sender: FDA-Public Use
  Company Number: CN-ELI_LILLY_AND_COMPANY-CN202401000086

PATIENT
  Age: 73 Year
  Sex: Male
  Weight: 68 kg

DRUGS (2)
  1. PEMETREXED [Suspect]
     Active Substance: PEMETREXED
     Indication: Chemotherapy
     Dosage: 0.75 G, SINGLE
     Route: 041
     Dates: start: 20231219
  2. NEDAPLATIN [Suspect]
     Active Substance: NEDAPLATIN
     Indication: Chemotherapy
     Dosage: 100 MG, DAILY
     Route: 041
     Dates: start: 20231219

REACTIONS (1)
  - Drug-induced liver injury [Unknown]
